FAERS Safety Report 13464820 (Version 1)
Quarter: 2017Q2

REPORT INFORMATION
  Report Type: Spontaneous
  Country: GB (occurrence: GB)
  Receive Date: 20170420
  Receipt Date: 20170420
  Transmission Date: 20170830
  Serious: Yes (Other)
  Sender: FDA-Public Use
  Company Number: PHFR2017GB002603

PATIENT
  Age: 4 Year
  Sex: Male
  Weight: 15 kg

DRUGS (3)
  1. IBUPROFEN. [Concomitant]
     Active Substance: IBUPROFEN
     Indication: PRODUCT USED FOR UNKNOWN INDICATION
     Dosage: STOPPED WHEN ANTIBIOTIC STARTED
     Route: 065
  2. PHENOXYMETHYLPENICILLIN POTASSIUM [Suspect]
     Active Substance: PENICILLIN V POTASSIUM
     Indication: PYREXIA
     Dosage: EVERY 4 OR 5 HOURS DURING THE DAY
     Route: 048
     Dates: start: 20170327, end: 20170329
  3. PARACETAMOL [Concomitant]
     Active Substance: ACETAMINOPHEN
     Indication: PRODUCT USED FOR UNKNOWN INDICATION
     Dosage: STOPPED WHEN ANTIBIOTIC STARTED
     Route: 065

REACTIONS (1)
  - Sudden hearing loss [Not Recovered/Not Resolved]
